FAERS Safety Report 4506362-9 (Version None)
Quarter: 2004Q4

REPORT INFORMATION
  Report Type: 
  Country: None (occurrence: None)
  Receive Date: 20041025
  Receipt Date: 20031223
  Transmission Date: 20050328
  Serious: Yes (Hospitalization)
  Sender: FDA-Public Use
  Company Number: US-JNJFOC-20031101321

PATIENT
  Age: 63 Year
  Sex: Male

DRUGS (14)
  1. REMICADE [Suspect]
     Indication: ANAL FISTULA
     Dosage: INTRAVENOUS; SEE IMAGE
     Route: 042
     Dates: start: 20000419
  2. REMICADE [Suspect]
     Indication: CROHN'S DISEASE
     Dosage: INTRAVENOUS; SEE IMAGE
     Route: 042
     Dates: start: 20000419
  3. REMICADE [Suspect]
     Indication: ANAL FISTULA
     Dosage: INTRAVENOUS; SEE IMAGE
     Route: 042
     Dates: start: 20031016
  4. REMICADE [Suspect]
     Indication: CROHN'S DISEASE
     Dosage: INTRAVENOUS; SEE IMAGE
     Route: 042
     Dates: start: 20031016
  5. CIPRO [Concomitant]
  6. PRILOSEC [Concomitant]
  7. AZULFIDINE [Concomitant]
  8. ENTOCORT (BUDESONIDE) [Concomitant]
  9. LECITHIN (LECITHIN) [Concomitant]
  10. PREDNISONE [Concomitant]
  11. QUANANINE (ALL OTHER THERAPEUTIC PRODUCTS) [Concomitant]
  12. FOLIC ACID [Concomitant]
  13. VITAMIN B (VITAMIN B) [Concomitant]
  14. SOLU-MEDROL [Concomitant]

REACTIONS (2)
  - CHEST PAIN [None]
  - SERUM SICKNESS [None]
